FAERS Safety Report 17489901 (Version 1)
Quarter: 2020Q1

REPORT INFORMATION
  Report Type: Spontaneous
  Country: US (occurrence: US)
  Receive Date: 20200303
  Receipt Date: 20200303
  Transmission Date: 20200409
  Serious: No
  Sender: FDA-Public Use
  Company Number: US-AKORN PHARMACEUTICALS-2019AKN01720

PATIENT
  Sex: Female

DRUGS (2)
  1. MYORISAN [Suspect]
     Active Substance: ISOTRETINOIN
     Dosage: CHANGED DOSE
     Dates: start: 2019, end: 20190630
  2. MYORISAN [Suspect]
     Active Substance: ISOTRETINOIN
     Dosage: INITIAL DOSE
     Dates: start: 20190401, end: 2019

REACTIONS (2)
  - Chills [Unknown]
  - Headache [Unknown]

NARRATIVE: CASE EVENT DATE: 2019
